FAERS Safety Report 10599699 (Version 1)
Quarter: 2014Q4

REPORT INFORMATION
  Report Type: Spontaneous
  Country: US (occurrence: US)
  Receive Date: 20141121
  Receipt Date: 20141121
  Transmission Date: 20150529
  Serious: No
  Sender: FDA-Public Use
  Company Number: US-GLAXOSMITHKLINE-US2014010920

PATIENT
  Age: 51 Year
  Sex: Female

DRUGS (1)
  1. WALGREENS NICOTINE TRANSDERMAL SYSTEM PATCH CLEAR, 7MG TRANSDERMAL PAT [Suspect]
     Active Substance: NICOTINE
     Dosage: 7 MG, UNK
     Route: 062
     Dates: start: 20141020, end: 20141022

REACTIONS (4)
  - Application site erythema [Recovering/Resolving]
  - Application site reaction [Recovered/Resolved with Sequelae]
  - Application site pruritus [Recovered/Resolved]
  - Application site pain [Recovered/Resolved]

NARRATIVE: CASE EVENT DATE: 20141020
